FAERS Safety Report 6197341-7 (Version None)
Quarter: 2009Q2

REPORT INFORMATION
  Report Type: 
  Country: None (occurrence: None)
  Receive Date: 20090518
  Receipt Date: 20090508
  Transmission Date: 20091009
  Serious: Yes (Hospitalization, Other)
  Sender: FDA-Public Use
  Company Number: 2008SP014701

PATIENT
  Age: 48 Year
  Sex: Female
  Weight: 88.4514 kg

DRUGS (3)
  1. PEG-INTRON [Suspect]
     Indication: HEPATITIS C
     Dates: start: 20080519, end: 20081103
  2. RIBAVIRIN [Suspect]
     Indication: HEPATITIS C
     Dosage: 1200 MG; QD; PO, 800 MG; QD; PO
     Route: 048
     Dates: end: 20081103
  3. RIBAVIRIN [Suspect]
     Indication: HEPATITIS C
     Dosage: 1200 MG; QD; PO, 800 MG; QD; PO
     Route: 048
     Dates: start: 20080519

REACTIONS (16)
  - ALOPECIA [None]
  - ANAEMIA [None]
  - BILE DUCT OBSTRUCTION [None]
  - COUGH [None]
  - DEHYDRATION [None]
  - HEPATIC CIRRHOSIS [None]
  - HYPOTHYROIDISM [None]
  - NIGHT SWEATS [None]
  - OEDEMA PERIPHERAL [None]
  - PORTAL HYPERTENSION [None]
  - RASH [None]
  - RECTAL HAEMORRHAGE [None]
  - RESTLESS LEGS SYNDROME [None]
  - VARICES OESOPHAGEAL [None]
  - VEIN DISORDER [None]
  - VOMITING [None]
